FAERS Safety Report 11252143 (Version 1)
Quarter: 2015Q3

REPORT INFORMATION
  Report Type: Spontaneous
  Country: US (occurrence: US)
  Receive Date: 20150708
  Receipt Date: 20150708
  Transmission Date: 20151125
  Serious: No
  Sender: FDA-Public Use
  Company Number: US-ELI_LILLY_AND_COMPANY-US201304005834

PATIENT
  Sex: Female

DRUGS (3)
  1. ALIMTA [Suspect]
     Active Substance: PEMETREXED DISODIUM
     Indication: LUNG CARCINOMA CELL TYPE UNSPECIFIED STAGE IV
  2. DEXAMETHASONE. [Concomitant]
     Active Substance: DEXAMETHASONE
  3. FOLIC ACID. [Concomitant]
     Active Substance: FOLIC ACID

REACTIONS (6)
  - Rash [Unknown]
  - Pain [Unknown]
  - Candida infection [Unknown]
  - Pruritus [Unknown]
  - Lacrimation increased [Unknown]
  - Constipation [Unknown]
